FAERS Safety Report 16289350 (Version 2)
Quarter: 2019Q2

REPORT INFORMATION
  Report Type: Report from Study
  Country: US (occurrence: US)
  Receive Date: 20190509
  Receipt Date: 20190612
  Transmission Date: 20190711
  Serious: Yes (Hospitalization)
  Sender: FDA-Public Use
  Company Number: US-ROCHE-2311077

PATIENT
  Age: 68 Year
  Sex: Male
  Weight: 115 kg

DRUGS (9)
  1. COBIMETINIB. [Suspect]
     Active Substance: COBIMETINIB
     Indication: HAEMOPHAGOCYTIC LYMPHOHISTIOCYTOSIS
     Route: 048
     Dates: start: 20190109, end: 20190423
  2. LANTUS [Concomitant]
     Active Substance: INSULIN GLARGINE
     Dosage: 100 UNITS/ML SUBCUTANEOUS SOLUTION 65 UNIT(S) SUBCUTANEOUS ONCE A DAY (AT BEDTIME)
     Route: 065
  3. HYDROCHLOROTHIAZIDE;OLMESARTAN [Concomitant]
     Indication: RASH
     Dosage: 0.1% TOPICRASH AL CREAM APPLY TOPICALLY TO AFFECTED AREA 2 TIMES A DAY
     Route: 065
  4. TRIAMCINOLONE [Concomitant]
     Active Substance: TRIAMCINOLONE
     Indication: RASH
     Dosage: 0.1% TOPICAL CREAM APPLY TOPICALLY TO AFFECTED AREA 2 TIMES A DAY
     Route: 065
  5. FENOFIBRATE. [Concomitant]
     Active Substance: FENOFIBRATE
     Dosage: 160 MG ORAL TABLET 1 TAB(S) ORALLY ONCE A DAY
     Route: 065
  6. METOPROLOL TARTRATE. [Concomitant]
     Active Substance: METOPROLOL TARTRATE
     Dosage: 20 MG-12.5 MG ORAL TABLET 1 TAB(S) ORALLY ONCE A DAY
     Route: 065
  7. HYDROCORTISONE. [Concomitant]
     Active Substance: HYDROCORTISONE
     Indication: RASH
     Dosage: 2.5% TOPICAL CREAM APPLY TOPICALLY TO AFFECTED AREA 2 TIMES A DAY
     Route: 065
  8. CLOBETASOL [Concomitant]
     Active Substance: CLOBETASOL
     Dosage: 0.05% TOPICAL SOLUTION APPLY TOPICALLY TO AFFECTED AREA ONCE A DAY
     Route: 065
  9. METFORMIN [Concomitant]
     Active Substance: METFORMIN HYDROCHLORIDE
     Dosage: 500 MG ORAL TABLET, EXTENDED RELEASE 2 TAB(S) ORALLY ONCE A DAY
     Route: 065

REACTIONS (2)
  - Blood creatine phosphokinase increased [Recovering/Resolving]
  - Acute kidney injury [Recovering/Resolving]

NARRATIVE: CASE EVENT DATE: 20190426
